FAERS Safety Report 9678853 (Version 1)
Quarter: 2013Q4

REPORT INFORMATION
  Report Type: Spontaneous
  Country: BR (occurrence: BR)
  Receive Date: 20131108
  Receipt Date: 20131108
  Transmission Date: 20140711
  Serious: Yes (Other)
  Sender: FDA-Public Use
  Company Number: BR-BRISTOL-MYERS SQUIBB COMPANY-19709922

PATIENT
  Age: 44 Year
  Sex: Female
  Weight: 95 kg

DRUGS (2)
  1. ABILIFY TABS 10 MG [Suspect]
     Indication: DEPRESSION
     Route: 048
     Dates: start: 20131024, end: 20131024
  2. EUTHYROX [Concomitant]
     Indication: HYPOTHYROIDISM
     Dosage: 1 TABLET
     Route: 048

REACTIONS (8)
  - Throat tightness [Not Recovered/Not Resolved]
  - Nausea [Not Recovered/Not Resolved]
  - Headache [Not Recovered/Not Resolved]
  - Dyspepsia [Not Recovered/Not Resolved]
  - Vomiting [Not Recovered/Not Resolved]
  - Swelling face [Not Recovered/Not Resolved]
  - Hangover [Not Recovered/Not Resolved]
  - Wrong technique in drug usage process [Unknown]
